FAERS Safety Report 25351811 (Version 2)
Quarter: 2025Q2

REPORT INFORMATION
  Report Type: Report from Study
  Country: IT (occurrence: IT)
  Receive Date: 20250523
  Receipt Date: 20250614
  Transmission Date: 20250716
  Serious: Yes (Other)
  Sender: AUROBINDO
  Company Number: IT-009507513-2269845

PATIENT
  Age: 13 Year
  Weight: 63 kg

DRUGS (4)
  1. PIPERACILLIN AND TAZOBACTAM [Interacting]
     Active Substance: PIPERACILLIN SODIUM\TAZOBACTAM SODIUM
     Indication: Osteomyelitis
     Route: 065
  2. DAPTOMYCIN [Interacting]
     Active Substance: DAPTOMYCIN
     Indication: Osteomyelitis
     Dosage: 7.14 MILLIGRAM/KILOGRAM, ONCE A DAY
     Route: 042
  3. CEFAZOLIN [Interacting]
     Active Substance: CEFAZOLIN
     Indication: Osteomyelitis
     Route: 065
  4. AMIKACIN [Interacting]
     Active Substance: AMIKACIN
     Indication: Osteomyelitis
     Route: 065

REACTIONS (4)
  - Treatment failure [Unknown]
  - C-reactive protein increased [Unknown]
  - Potentiating drug interaction [Unknown]
  - Off label use [Unknown]

NARRATIVE: CASE EVENT DATE: 20220101
